FAERS Safety Report 7821011-X (Version None)
Quarter: 2011Q4

REPORT INFORMATION
  Report Type: 
  Country: None (occurrence: None)
  Receive Date: 20111018
  Receipt Date: 20111005
  Transmission Date: 20120403
  Serious: Yes (Hospitalization)
  Sender: FDA-Public Use
  Company Number: JP-SANOFI-AVENTIS-2011SA066836

PATIENT
  Age: 77 Year
  Sex: Female

DRUGS (2)
  1. METFORMIN HCL [Suspect]
     Route: 048
  2. GLIMEPIRIDE [Suspect]
     Route: 048

REACTIONS (3)
  - COMA [None]
  - MENTAL DISORDER [None]
  - HYPOGLYCAEMIC ENCEPHALOPATHY [None]
